FAERS Safety Report 4750863-5 (Version None)
Quarter: 2005Q3

REPORT INFORMATION
  Report Type: 
  Country: None (occurrence: None)
  Receive Date: 20050822
  Receipt Date: 20050524
  Transmission Date: 20060218
  Serious: Yes (Hospitalization, Other)
  Sender: FDA-Public Use
  Company Number: 2005079248

PATIENT
  Age: 63 Year
  Sex: Female
  Weight: 101.6057 kg

DRUGS (9)
  1. CELEBREX [Suspect]
     Indication: MONARTHRITIS
     Dosage: 200 MG, ORAL
     Route: 048
     Dates: end: 20040101
  2. NORVASC [Suspect]
     Indication: FEELING COLD
     Dosage: 5 MG (5 MG, 1 IN 1 D), ORAL
     Route: 048
     Dates: start: 20040101
  3. PLAVIX [Suspect]
     Indication: ILL-DEFINED DISORDER
     Dosage: ORAL
     Route: 048
     Dates: start: 20040101
  4. ACTOS [Concomitant]
  5. ATENOLOL [Concomitant]
  6. GLYBURIDE [Concomitant]
  7. FUROSEMIDE [Concomitant]
  8. DETROL [Concomitant]
  9. OMEPRAZOLE [Concomitant]

REACTIONS (15)
  - ANGIOGRAM ABNORMAL [None]
  - ANKLE FRACTURE [None]
  - ARTHRALGIA [None]
  - ARTHROPATHY [None]
  - BACK PAIN [None]
  - CARDIAC ANEURYSM [None]
  - CORONARY ARTERY OCCLUSION [None]
  - DIZZINESS [None]
  - DRUG INEFFECTIVE [None]
  - DRY MOUTH [None]
  - FALL [None]
  - FEELING COLD [None]
  - INSOMNIA [None]
  - UPPER LIMB FRACTURE [None]
  - WEIGHT INCREASED [None]
